FAERS Safety Report 9907061 (Version 2)
Quarter: 2014Q2

REPORT INFORMATION
  Report Type: Spontaneous
  Country: US (occurrence: US)
  Receive Date: 20140218
  Receipt Date: 20140403
  Transmission Date: 20141212
  Serious: Yes (Hospitalization)
  Sender: FDA-Public Use
  Company Number: US-B.I. PHARMACEUTICALS,INC./RIDGEFIELD-2014-BI-06523BP

PATIENT
  Sex: Male
  Weight: 81.65 kg

DRUGS (10)
  1. PRADAXA [Suspect]
     Indication: ATRIAL FIBRILLATION
     Dosage: 300 MG
     Route: 048
     Dates: start: 20110119, end: 201102
  2. PRADAXA [Suspect]
     Dosage: 300 MG
     Route: 048
     Dates: end: 20120314
  3. GLIPIZIDE [Concomitant]
     Route: 065
  4. ADVAIR [Concomitant]
     Route: 065
  5. ATENOLOL [Concomitant]
     Route: 065
  6. LISINOPRIL [Concomitant]
     Route: 065
  7. ZOCOR [Concomitant]
     Route: 065
  8. ISOSORBIDE [Concomitant]
     Route: 065
  9. NITROSTAT [Concomitant]
     Route: 065
  10. COREG [Concomitant]
     Route: 065

REACTIONS (5)
  - Gastrointestinal haemorrhage [Unknown]
  - Chronic gastritis [Unknown]
  - Haemorrhagic anaemia [Unknown]
  - Renal failure acute [Unknown]
  - Anaemia [Unknown]
